FAERS Safety Report 9695862 (Version 2)
Quarter: 2014Q1

REPORT INFORMATION
  Report Type: Spontaneous
  Country: US (occurrence: None)
  Receive Date: 20131115
  Receipt Date: 20140107
  Transmission Date: 20141002
  Serious: Yes (Other)
  Sender: FDA-Public Use
  Company Number: 2013P1020814

PATIENT
  Age: 23 Year
  Sex: Male
  Weight: 79.38 kg

DRUGS (4)
  1. OXTELLAR XR [Suspect]
     Indication: COMPLEX PARTIAL SEIZURES
     Dosage: 150 MG: QD; PO
     Route: 048
     Dates: start: 20131030
  2. OXTELLAR XR [Suspect]
     Dosage: 1800 MG; QD; PO
     Route: 048
     Dates: start: 20131030
  3. MULTIVITAMIN [Concomitant]
  4. UNKNOWN TOPICAL PRODUCT [Concomitant]

REACTIONS (4)
  - Complex partial seizures [None]
  - Headache [None]
  - Loss of consciousness [None]
  - Abdominal pain upper [None]
